FAERS Safety Report 23803897 (Version 3)
Quarter: 2024Q2

REPORT INFORMATION
  Report Type: Spontaneous
  Country: US (occurrence: US)
  Receive Date: 20240501
  Receipt Date: 20240527
  Transmission Date: 20240715
  Serious: No
  Sender: FDA-Public Use
  Company Number: US-BRISTOL-MYERS SQUIBB COMPANY-2024-066680

PATIENT
  Age: 84 Year
  Sex: Male
  Weight: 74.39 kg

DRUGS (1)
  1. REVLIMID [Suspect]
     Active Substance: LENALIDOMIDE
     Indication: Myelodysplastic syndrome
     Route: 048

REACTIONS (4)
  - Product prescribing error [Unknown]
  - Drug intolerance [Unknown]
  - Fatigue [Unknown]
  - Full blood count decreased [Unknown]
